FAERS Safety Report 7326213-7 (Version None)
Quarter: 2011Q1

REPORT INFORMATION
  Report Type: 
  Country: None (occurrence: None)
  Receive Date: 20110302
  Receipt Date: 20110223
  Transmission Date: 20110831
  Serious: Yes (Hospitalization)
  Sender: FDA-Public Use
  Company Number: A0869221A

PATIENT
  Age: 84 Year
  Sex: Male

DRUGS (7)
  1. LISINOPRIL [Concomitant]
  2. CLONIDINE [Concomitant]
  3. TERAZOSIN [Concomitant]
  4. COUMADIN [Concomitant]
  5. ASPIRIN [Concomitant]
  6. AVODART [Suspect]
     Indication: PRODUCT USED FOR UNKNOWN INDICATION
     Route: 048
  7. PRAVASTATIN [Concomitant]

REACTIONS (4)
  - PRODUCT QUALITY ISSUE [None]
  - HAEMORRHAGE [None]
  - BLOOD TEST ABNORMAL [None]
  - ASTHENIA [None]
